FAERS Safety Report 6157436-0 (Version None)
Quarter: 2009Q2

REPORT INFORMATION
  Report Type: 
  Country: None (occurrence: None)
  Receive Date: 20090414
  Receipt Date: 20090331
  Transmission Date: 20091009
  Serious: Yes (Hospitalization)
  Sender: FDA-Public Use
  Company Number: 2009000981

PATIENT
  Age: 80 Year
  Sex: Male
  Weight: 86.5 kg

DRUGS (3)
  1. ERLOTINIB (ERLOTINIB) (TABLET) (ERLOTINIB) [Suspect]
     Indication: LUNG ADENOCARCINOMA
     Dosage: (150 MG, QD), ORAL
     Route: 048
     Dates: start: 20080819
  2. PACLITAXEL [Suspect]
     Indication: LUNG ADENOCARCINOMA
     Dosage: (200 MG/M2), INTRAVENOUS
     Route: 042
     Dates: start: 20080819
  3. CARBOPLATIN [Suspect]
     Indication: LUNG ADENOCARCINOMA
     Dosage: (6 AUC), INTRAVENOUS
     Route: 042
     Dates: start: 20080819

REACTIONS (18)
  - ANAEMIA [None]
  - ANOREXIA [None]
  - ARRHYTHMIA [None]
  - DEHYDRATION [None]
  - DISEASE PROGRESSION [None]
  - EARLY SATIETY [None]
  - HYPOCALCAEMIA [None]
  - HYPOPHOSPHATAEMIA [None]
  - LYMPHOPENIA [None]
  - MUSCULAR WEAKNESS [None]
  - OESOPHAGEAL MASS [None]
  - OESOPHAGEAL ULCER [None]
  - OESOPHAGITIS [None]
  - PLATELET DISORDER [None]
  - PNEUMONIA [None]
  - RETCHING [None]
  - TACHYCARDIA [None]
  - WHITE BLOOD CELL DISORDER [None]
